FAERS Safety Report 18637645 (Version 4)
Quarter: 2021Q1

REPORT INFORMATION
  Report Type: Report from Study
  Country: BR (occurrence: BR)
  Receive Date: 20201218
  Receipt Date: 20210312
  Transmission Date: 20210419
  Serious: Yes (Other)
  Sender: FDA-Public Use
  Company Number: NVSC2020BR334068

PATIENT
  Age: 50 Year
  Sex: Male
  Weight: 110 kg

DRUGS (2)
  1. COSENTYX [Suspect]
     Active Substance: SECUKINUMAB
     Indication: PSORIATIC ARTHROPATHY
     Dosage: 300 MG, QMO
     Route: 065
     Dates: start: 2018, end: 202010
  2. COSENTYX [Suspect]
     Active Substance: SECUKINUMAB
     Dosage: 300 MG, QMO
     Route: 065
     Dates: start: 20181029

REACTIONS (16)
  - Skin haemorrhage [Unknown]
  - Skin disorder [Not Recovered/Not Resolved]
  - Psoriatic arthropathy [Unknown]
  - Arthralgia [Not Recovered/Not Resolved]
  - Pain [Unknown]
  - Skin discolouration [Unknown]
  - Pigmentation disorder [Not Recovered/Not Resolved]
  - Psoriasis [Unknown]
  - General physical health deterioration [Unknown]
  - Back pain [Not Recovered/Not Resolved]
  - Dermatitis psoriasiform [Not Recovered/Not Resolved]
  - Myalgia [Not Recovered/Not Resolved]
  - Nephropathy [Unknown]
  - Renal cyst [Unknown]
  - Skin laceration [Unknown]
  - Renal disorder [Unknown]

NARRATIVE: CASE EVENT DATE: 202012
